FAERS Safety Report 19752600 (Version 1)
Quarter: 2021Q3

REPORT INFORMATION
  Report Type: Spontaneous
  Country: FR (occurrence: FR)
  Receive Date: 20210827
  Receipt Date: 20210827
  Transmission Date: 20211014
  Serious: Yes (Other)
  Sender: FDA-Public Use
  Company Number: FR-LUPIN PHARMACEUTICALS INC.-2021-15662

PATIENT
  Age: 51 Year
  Sex: Male

DRUGS (3)
  1. DESLORATADINE. [Suspect]
     Active Substance: DESLORATADINE
     Indication: CHRONIC SPONTANEOUS URTICARIA
     Dosage: 4 DOSAGE FORM, QD (TABLETS)
     Route: 065
  2. EBASTINE [Suspect]
     Active Substance: EBASTINE
     Indication: CHRONIC SPONTANEOUS URTICARIA
     Dosage: 4 DOSAGE FORM, QD
     Route: 065
  3. LEVOCETIRIZINE [Concomitant]
     Active Substance: LEVOCETIRIZINE
     Indication: CHRONIC SPONTANEOUS URTICARIA
     Dosage: 4 DOSAGE FORM, QD
     Route: 065

REACTIONS (5)
  - Drug eruption [Recovered/Resolved]
  - Drug ineffective [Unknown]
  - Type IV hypersensitivity reaction [Recovered/Resolved]
  - Cross sensitivity reaction [Recovered/Resolved]
  - Rash maculo-papular [Recovered/Resolved]
